FAERS Safety Report 8118288-2 (Version None)
Quarter: 2012Q1

REPORT INFORMATION
  Report Type: 
  Country: None (occurrence: None)
  Receive Date: 20120201
  Receipt Date: 20120123
  Transmission Date: 20120608
  Serious: Yes (Hospitalization, Other)
  Sender: FDA-Public Use
  Company Number: AUR-APL-2011-04851

PATIENT
  Age: 84 Year
  Sex: Female

DRUGS (10)
  1. RAMIPRIL [Suspect]
     Indication: ESSENTIAL HYPERTENSION
     Dosage: (0.5 MG, 1 D), ORAL
     Route: 048
     Dates: end: 20110707
  2. SPIRIVA [Concomitant]
  3. FUROSEMIDE [Concomitant]
  4. CLINDAMYCIN HCL [Concomitant]
  5. METOPROLOL TARTRATE [Suspect]
     Indication: ESSENTIAL HYPERTENSION
     Dosage: ORAL
     Route: 048
     Dates: end: 20110707
  6. FLUTICASONE PROPIONATE [Concomitant]
  7. FELODIPINE [Concomitant]
  8. TRAMADOL HCL [Concomitant]
  9. AMITRIPTYLINE HCL [Concomitant]
  10. ACETAMINOPHEN [Concomitant]

REACTIONS (2)
  - BRADYCARDIA [None]
  - BLOOD CREATININE INCREASED [None]
